FAERS Safety Report 9768038 (Version 1)
Quarter: 2013Q4

REPORT INFORMATION
  Report Type: Spontaneous
  Country: US (occurrence: US)
  Receive Date: 20131217
  Receipt Date: 20131217
  Transmission Date: 20140711
  Serious: Yes (Other)
  Sender: FDA-Public Use
  Company Number: US-PFIZER INC-2013355729

PATIENT
  Age: 68 Year
  Sex: Male
  Weight: 71.66 kg

DRUGS (2)
  1. ZYVOX [Suspect]
     Dosage: UNK
     Route: 048
  2. ZYVOX [Suspect]
     Indication: PNEUMONIA STAPHYLOCOCCAL
     Dosage: 300 MG, 2X/DAY
     Route: 042
     Dates: start: 201308, end: 201311

REACTIONS (4)
  - Pneumonia staphylococcal [Unknown]
  - Dysphagia [Unknown]
  - Throat irritation [Unknown]
  - Weight decreased [Unknown]
